FAERS Safety Report 9528656 (Version 2)
Quarter: 2013Q3

REPORT INFORMATION
  Report Type: Report from Study
  Country: DE (occurrence: DE)
  Receive Date: 20130917
  Receipt Date: 20130920
  Transmission Date: 20140515
  Serious: Yes (Hospitalization, Other)
  Sender: FDA-Public Use
  Company Number: DE-TEVA-430601GER

PATIENT
  Sex: Male

DRUGS (22)
  1. DOXORUBICIN [Suspect]
     Indication: B-CELL LYMPHOMA
     Dosage: 1 PER CYCLE
     Route: 042
     Dates: start: 20130606
  2. DOXORUBICIN [Suspect]
     Dosage: 1 PER CYCLE
     Route: 042
     Dates: start: 20130620, end: 20130620
  3. PREDNISOLONE [Suspect]
     Indication: B-CELL LYMPHOMA
     Dosage: 9 DAYS PER CYCLE
     Route: 048
     Dates: start: 20130619, end: 20130627
  4. RITUXIMAB [Suspect]
     Indication: B-CELL LYMPHOMA
     Dosage: 375 MG/M2 DAILY;
     Route: 042
     Dates: start: 20130619, end: 20130619
  5. CYCLOPHOSPHAMIDE [Suspect]
     Indication: B-CELL LYMPHOMA
     Dosage: 1 PER CYCLE
     Route: 042
     Dates: start: 20130606
  6. CYCLOPHOSPHAMIDE [Suspect]
     Dosage: 750 MG/M2 DAILY;
     Route: 042
     Dates: start: 20130620, end: 20130620
  7. PEGFILGRASTIM [Suspect]
     Indication: B-CELL LYMPHOMA
     Dosage: ONCE PER CYCLE
     Route: 058
     Dates: start: 20130609
  8. PEGFILGRASTIM [Suspect]
     Dosage: 6 MILLIGRAM DAILY;
     Route: 065
     Dates: start: 20130623, end: 20130623
  9. VINCRISTINE LIPOSOMAL [Suspect]
     Indication: B-CELL LYMPHOMA
     Dosage: 1 PER CYCLE
     Route: 042
     Dates: start: 20130606
  10. VINCRISTINE LIPOSOMAL [Suspect]
     Dosage: 2 MG/M2 DAILY; 1 PER CYCLE
     Route: 042
     Dates: start: 20130620, end: 20130620
  11. LERCANIDIPINE HYDROCHLORIDE [Concomitant]
     Dosage: 10 MILLIGRAM DAILY;
  12. INSULIN GLARGINE [Concomitant]
     Dosage: 23 IU (INTERNATIONAL UNIT) DAILY;
     Route: 058
  13. INSULIN LISPRO [Concomitant]
     Dosage: 54 IU (INTERNATIONAL UNIT) DAILY; 10-24-20 IU
     Route: 058
  14. FORMOTEROL FUMARATE [Concomitant]
     Dosage: 2 DOSAGE FORMS DAILY;
  15. SALBUTAMOL SULFATE [Concomitant]
     Route: 055
  16. TIMOLOL MALEATE [Concomitant]
     Dosage: 2 DOSAGE FORMS DAILY;
  17. PANTOPRAZOLE [Concomitant]
     Dosage: 40 MILLIGRAM DAILY;
  18. MAGALDRATE [Concomitant]
  19. POTASSIUM CHLORIDE [Concomitant]
     Dosage: 9 DOSAGE FORMS DAILY; 3-3-3
  20. DIPYRONE [Concomitant]
     Dosage: 4 DOSAGE FORMS DAILY; 1-1-1-1
  21. HYDROMORPHONE HYDROCHLORIDE [Concomitant]
     Dosage: UP TO 4X/DAY
  22. CIPROFLOXACIN [Concomitant]
     Dosage: 1000 MILLIGRAM DAILY;
     Dates: start: 20130701

REACTIONS (3)
  - Fatigue [Recovered/Resolved]
  - Neutropenic infection [Recovered/Resolved with Sequelae]
  - Pneumocystis jirovecii infection [Unknown]
